FAERS Safety Report 25412520 (Version 1)
Quarter: 2025Q2

REPORT INFORMATION
  Report Type: Spontaneous
  Country: US (occurrence: None)
  Receive Date: 20250606
  Receipt Date: 20250606
  Transmission Date: 20250717
  Serious: Yes (Life-Threatening, Hospitalization, Disabling)
  Sender: FDA-CTU
  Company Number: None

PATIENT
  Age: 33 Year
  Sex: Female

DRUGS (3)
  1. GADAVIST [Suspect]
     Active Substance: GADOBUTROL
     Indication: Imaging procedure
     Route: 042
     Dates: start: 20250305, end: 20250407
  2. DEVICE [Concomitant]
     Active Substance: DEVICE
  3. vitamin d3 tablet [Concomitant]
     Dosage: FREQUENCY : WEEKLY;?

REACTIONS (22)
  - General physical health deterioration [None]
  - Tinnitus [None]
  - Brain fog [None]
  - Musculoskeletal stiffness [None]
  - Musculoskeletal stiffness [None]
  - Palpitations [None]
  - Dry eye [None]
  - Dry mouth [None]
  - Dry skin [None]
  - Fatigue [None]
  - Dyspnoea [None]
  - Vision blurred [None]
  - Muscle atrophy [None]
  - Myalgia [None]
  - Bone pain [None]
  - Abdominal mass [None]
  - Limb mass [None]
  - Ligament disorder [None]
  - Skin burning sensation [None]
  - Dizziness postural [None]
  - Malaise [None]
  - Contrast media reaction [None]

NARRATIVE: CASE EVENT DATE: 20250305
